FAERS Safety Report 7011812-2 (Version None)
Quarter: 2010Q3

REPORT INFORMATION
  Report Type: 
  Country: None (occurrence: None)
  Receive Date: 20100923
  Receipt Date: 20100209
  Transmission Date: 20110219
  Serious: No
  Sender: FDA-Public Use
  Company Number: US-WYE-H13572610

PATIENT
  Age: 77 Year
  Sex: Female

DRUGS (2)
  1. ADVIL PM [Suspect]
     Indication: HEADACHE
     Dosage: 1 LIQUIGEL ONE TIME
     Route: 048
     Dates: start: 20100207, end: 20100207
  2. ADVIL PM [Suspect]
     Indication: PAIN IN EXTREMITY

REACTIONS (2)
  - CHOKING [None]
  - DRUG LABEL CONFUSION [None]
